FAERS Safety Report 9470814 (Version 2)
Quarter: 2013Q4

REPORT INFORMATION
  Report Type: Spontaneous
  Country: US (occurrence: US)
  Receive Date: 20130822
  Receipt Date: 20131014
  Transmission Date: 20140711
  Serious: No
  Sender: FDA-Public Use
  Company Number: US-PFIZER INC-2013240510

PATIENT
  Age: 66 Year
  Sex: Male

DRUGS (3)
  1. SUTENT [Suspect]
     Indication: RENAL CANCER
     Dosage: 50 MG, CYCLIC (4 WEEKS ON, 2 WEEKS OFF)
     Dates: start: 201211
  2. SUTENT [Suspect]
     Dosage: 37.5 MG, CYCLIC (4 WEEKS ON, 2 WEEKS OFF)
  3. SUTENT [Suspect]
     Dosage: 37.5 MG, CYCLIC (3 WEEKS ON, 3 WEEKS OFF)

REACTIONS (6)
  - Disease progression [Unknown]
  - Renal cancer [Unknown]
  - Drug intolerance [Unknown]
  - White blood cell count decreased [Unknown]
  - Red blood cell count decreased [Unknown]
  - Burning sensation [Unknown]
